FAERS Safety Report 7888620-3 (Version None)
Quarter: 2011Q4

REPORT INFORMATION
  Report Type: 
  Country: None (occurrence: None)
  Receive Date: 20111103
  Receipt Date: 20111024
  Transmission Date: 20120403
  Serious: Yes (Hospitalization)
  Sender: FDA-Public Use
  Company Number: US-BAYER-2011-091608

PATIENT
  Age: 27 Year
  Sex: Female

DRUGS (8)
  1. ASCORBIC ACID [Concomitant]
     Dosage: UNK UNK, PRN
  2. YASMIN [Suspect]
     Indication: CONTRACEPTION
     Dosage: UNK
     Dates: start: 20020401
  3. IBUPROFEN [Concomitant]
     Dosage: UNK UNK, PRN
  4. ANTIBIOTICS [Concomitant]
  5. YAZ [Suspect]
     Indication: CONTRACEPTION
     Dosage: UNK
     Dates: start: 20020401
  6. DROSPIRENONE AND ETHINYL ESTRADIOL [Suspect]
     Indication: CONTRACEPTION
     Dosage: UNK
     Dates: start: 20020401
  7. MEDICATIONS FOR MIGRAINES [Concomitant]
     Dosage: UNK
     Dates: start: 20030101
  8. POTASSIUM [Concomitant]
     Dosage: UNK UNK, PRN

REACTIONS (1)
  - CHOLECYSTECTOMY [None]
